FAERS Safety Report 16744033 (Version 2)
Quarter: 2021Q4

REPORT INFORMATION
  Report Type: Report from Study
  Country: US (occurrence: US)
  Receive Date: 20190827
  Receipt Date: 20211123
  Transmission Date: 20220304
  Serious: Yes (Hospitalization, Other)
  Sender: FDA-Public Use
  Company Number: US-BRISTOL-MYERS SQUIBB COMPANY-BMS-2019-082226

PATIENT
  Age: 60 Year
  Sex: Female
  Weight: 122 kg

DRUGS (4)
  1. APIXABAN [Suspect]
     Active Substance: APIXABAN
     Indication: Thrombosis prophylaxis
     Dosage: UNK, BID
     Route: 048
     Dates: start: 20171219, end: 20181012
  2. APIXABAN [Suspect]
     Active Substance: APIXABAN
     Dosage: UNK, BID
     Route: 048
     Dates: start: 20181024
  3. OMEPRAZOLE [Concomitant]
     Active Substance: OMEPRAZOLE
     Indication: Product used for unknown indication
     Dosage: 20 MILLIGRAM,DAILY
     Route: 065
  4. PRILOSEC [Concomitant]
     Active Substance: OMEPRAZOLE MAGNESIUM
     Indication: Product used for unknown indication
     Dosage: 20 MILLIGRAM, BID
     Route: 065
     Dates: start: 20181012

REACTIONS (3)
  - Pulmonary embolism [Unknown]
  - Gastrointestinal haemorrhage [Recovering/Resolving]
  - Foot fracture [Unknown]

NARRATIVE: CASE EVENT DATE: 20181012
